FAERS Safety Report 9903082 (Version 1)
Quarter: 2014Q1

REPORT INFORMATION
  Report Type: Spontaneous
  Country: US (occurrence: US)
  Receive Date: 20140217
  Receipt Date: 20140217
  Transmission Date: 20141002
  Serious: Yes (Disabling)
  Sender: FDA-Public Use
  Company Number: US-MERZ PHARMACEUTICALS, LLC DRUG SAFETY-14MRZ-00076

PATIENT
  Age: 25 Year
  Sex: Male
  Weight: 63.56 kg

DRUGS (6)
  1. XEOMIN [Suspect]
     Indication: TORTICOLLIS
     Dosage: PATIENT WAS TREATED WITH ^APPROXIMATELY 100^ UNIT DOSE.
     Route: 030
     Dates: start: 20130417, end: 20130417
  2. XEOMIN [Suspect]
     Indication: MUSCLE RIGIDITY
  3. XEOMIN [Suspect]
     Indication: TRISMUS
  4. ATIVAN [Concomitant]
  5. KETAMINE SALTS [Concomitant]
  6. ASTHMA MEDICATION [Concomitant]

REACTIONS (14)
  - Musculoskeletal discomfort [Unknown]
  - Ear discomfort [Unknown]
  - Nuchal rigidity [Unknown]
  - Rash [Unknown]
  - Dyspnoea [Unknown]
  - Anxiety [Unknown]
  - Asthma [Unknown]
  - Nerve injury [Unknown]
  - Diaphragm muscle weakness [Unknown]
  - Sinus disorder [Unknown]
  - Suicidal ideation [Unknown]
  - Muscular weakness [Not Recovered/Not Resolved]
  - Hypoaesthesia [Not Recovered/Not Resolved]
  - Posture abnormal [Not Recovered/Not Resolved]
